FAERS Safety Report 7095393-3 (Version None)
Quarter: 2010Q4

REPORT INFORMATION
  Report Type: 
  Country: None (occurrence: None)
  Receive Date: 20101111
  Receipt Date: 20101029
  Transmission Date: 20110411
  Serious: Yes (Hospitalization, Other)
  Sender: FDA-Public Use
  Company Number: US-TYCO HEALTHCARE/MALLINCKRODT-T200900882

PATIENT
  Sex: Female

DRUGS (13)
  1. OPTIMARK [Suspect]
     Indication: ANGIOGRAM
     Dosage: UNK
     Dates: start: 20070329, end: 20070329
  2. LISINOPRIL [Concomitant]
     Dosage: 40 MG, QD
     Route: 048
  3. METOPROLOL [Concomitant]
     Dosage: 100 MG, BID
     Route: 048
  4. HYDRALAZINE [Concomitant]
     Dosage: 100 MG, BID
     Route: 048
  5. CATAPRES-TTS-1 [Concomitant]
     Dosage: 3 PATCHES WEEKLY
     Route: 062
  6. ALDOMET                            /00000101/ [Concomitant]
     Dosage: 500 MG, BID
     Route: 048
  7. ASPIRIN [Concomitant]
     Dosage: 352 MG, QD
     Route: 048
  8. LOVASTATIN [Concomitant]
     Dosage: 40 MG QHS
  9. RENAGEL                            /01459901/ [Concomitant]
  10. PHOSLO [Concomitant]
  11. EPOGEN [Concomitant]
  12. IRON SULFATETHIAMIN COMPOUND TAB [Concomitant]
  13. FOLATE [Concomitant]

REACTIONS (26)
  - ASTHENIA [None]
  - ATRIAL FIBRILLATION [None]
  - CONSTIPATION [None]
  - DECREASED APPETITE [None]
  - DIARRHOEA [None]
  - DIZZINESS [None]
  - EXCORIATION [None]
  - HAEMORRHOIDS [None]
  - HYPOTENSION [None]
  - INSOMNIA [None]
  - LETHARGY [None]
  - LIMB INJURY [None]
  - NAUSEA [None]
  - NEPHROGENIC SYSTEMIC FIBROSIS [None]
  - OEDEMA PERIPHERAL [None]
  - OFF LABEL USE [None]
  - PAIN [None]
  - PARAESTHESIA [None]
  - PERITONITIS [None]
  - PLEURAL EFFUSION [None]
  - PNEUMONIA [None]
  - SOMNOLENCE [None]
  - STAPHYLOCOCCAL INFECTION [None]
  - URINARY TRACT INFECTION [None]
  - VOMITING [None]
  - WEIGHT DECREASED [None]
